FAERS Safety Report 4615636-2 (Version None)
Quarter: 2005Q1

REPORT INFORMATION
  Report Type: 
  Country: None (occurrence: None)
  Receive Date: 20050322
  Receipt Date: 20050302
  Transmission Date: 20050727
  Serious: Yes (Death, Other)
  Sender: FDA-Public Use
  Company Number: US-MERCK-0503USA00332

PATIENT
  Sex: Female

DRUGS (3)
  1. CANCIDAS [Suspect]
     Indication: FEBRILE NEUTROPENIA
     Route: 042
  2. VORICONAZOLE [Concomitant]
     Route: 065
  3. AMPHOTERICIN B AND CHOLESTEROL AND DISTEAROYLPHOSPHATIDYLGLYCEROL AND [Suspect]
     Route: 065

REACTIONS (7)
  - ADVERSE EVENT [None]
  - ASPERGILLOSIS [None]
  - BRONCHOPULMONARY ASPERGILLOSIS [None]
  - CHEST PAIN [None]
  - CONVULSION [None]
  - DEATH [None]
  - DRUG INEFFECTIVE [None]
